FAERS Safety Report 10289942 (Version 1)
Quarter: 2014Q3

REPORT INFORMATION
  Report Type: Spontaneous
  Country: US (occurrence: None)
  Receive Date: 20140707
  Receipt Date: 20140707
  Transmission Date: 20150326
  Serious: Yes (Hospitalization)
  Sender: FDA-Public Use
  Company Number: None

PATIENT
  Age: 74 Year
  Sex: Male
  Weight: 79.2 kg

DRUGS (2)
  1. ASPIRIN. [Suspect]
     Active Substance: ASPIRIN
     Indication: CORONARY ARTERIAL STENT INSERTION
     Dosage: 81 MG, EVERY DAY, PO
     Route: 048
     Dates: start: 20121122
  2. CLOPIDOGREL [Suspect]
     Active Substance: CLOPIDOGREL BISULFATE
     Indication: CORONARY ARTERIAL STENT INSERTION
     Dosage: 75 MG, EVERY DAY, PO
     Route: 048
     Dates: start: 20121122

REACTIONS (6)
  - Dyspnoea exertional [None]
  - Hypotension [None]
  - Gastric haemorrhage [None]
  - Anaemia [None]
  - Lower gastrointestinal haemorrhage [None]
  - Dizziness [None]

NARRATIVE: CASE EVENT DATE: 20140513
